FAERS Safety Report 16944748 (Version 1)
Quarter: 2019Q4

REPORT INFORMATION
  Report Type: Spontaneous
  Country: US (occurrence: US)
  Receive Date: 20191022
  Receipt Date: 20191022
  Transmission Date: 20200122
  Serious: No
  Sender: FDA-Public Use
  Company Number: US-MYLANLABS-2019M1096161

PATIENT
  Age: 62 Year
  Sex: Female

DRUGS (2)
  1. ESTRADIOL VAGINAL CREAM USP [Suspect]
     Active Substance: ESTRADIOL
     Dosage: 1 GRAM, 3XW (1 GM/NIGHT: 2 WEEKS THEN 1 G 3 TIMES A WK AFTER)
     Dates: start: 20190830
  2. ESTRADIOL VAGINAL CREAM USP [Suspect]
     Active Substance: ESTRADIOL
     Indication: PRODUCT USED FOR UNKNOWN INDICATION
     Dosage: 1 GRAM, HS (1 GM/NIGHT: 2 WEEKS THEN 1 G 3 TIMES A WK AFTER)
     Dates: start: 20190830

REACTIONS (1)
  - Accidental overdose [Unknown]

NARRATIVE: CASE EVENT DATE: 2019
